FAERS Safety Report 11719424 (Version 2)
Quarter: 2015Q4

REPORT INFORMATION
  Report Type: Spontaneous
  Country: JP (occurrence: JP)
  Receive Date: 20151110
  Receipt Date: 20151216
  Transmission Date: 20160304
  Serious: Yes (Other)
  Sender: FDA-Public Use
  Company Number: JP-SA-2015SA177222

PATIENT
  Age: 82 Year
  Sex: Male

DRUGS (1)
  1. PLAVIX [Suspect]
     Active Substance: CLOPIDOGREL BISULFATE
     Route: 048

REACTIONS (1)
  - Electrocardiogram QT prolonged [Recovered/Resolved]
